FAERS Safety Report 23132230 (Version 4)
Quarter: 2024Q2

REPORT INFORMATION
  Report Type: Report from Study
  Country: CA (occurrence: CA)
  Receive Date: 20231101
  Receipt Date: 20240514
  Transmission Date: 20240716
  Serious: Yes (Other)
  Sender: FDA-Public Use
  Company Number: CA-JNJFOC-20231064969

PATIENT
  Age: 62 Year
  Sex: Female
  Weight: 70 kg

DRUGS (3)
  1. STELARA [Suspect]
     Active Substance: USTEKINUMAB
     Indication: Crohn^s disease
     Route: 042
     Dates: start: 202305
  2. STELARA [Suspect]
     Active Substance: USTEKINUMAB
     Route: 058
     Dates: start: 20230601
  3. STELARA [Suspect]
     Active Substance: USTEKINUMAB
     Dosage: IV RE-INDUCTION AND CONTINUATION OF TREATMENT Q 4 WEEKS
     Route: 042

REACTIONS (4)
  - Rectal abscess [Unknown]
  - COVID-19 [Recovering/Resolving]
  - Mucous stools [Unknown]
  - Diarrhoea [Unknown]

NARRATIVE: CASE EVENT DATE: 20230101
